FAERS Safety Report 4437548-X (Version None)
Quarter: 2004Q3

REPORT INFORMATION
  Report Type: 
  Country: None (occurrence: None)
  Receive Date: 20040827
  Receipt Date: 20040819
  Transmission Date: 20050211
  Serious: Yes (Hospitalization)
  Sender: FDA-Public Use
  Company Number: 2004-119595-NL

PATIENT
  Age: 43 Year
  Sex: Female

DRUGS (7)
  1. MIRTAZAPINE [Suspect]
     Dosage: 2 DF
     Dates: start: 19990101
  2. OLANZAPINE [Concomitant]
  3. CLORAZEPATE DIPOTASSIUM [Concomitant]
  4. LORMETAZEPAM [Concomitant]
  5. ALIMEMAZINE TARTRATE [Concomitant]
  6. HEPTAMINOL HYDROCHLORIDE [Concomitant]
  7. SURFALEM (ANETHOLTRITHIONE) [Concomitant]

REACTIONS (2)
  - DIZZINESS [None]
  - HYPONATRAEMIA [None]
